FAERS Safety Report 12825157 (Version 2)
Quarter: 2017Q4

REPORT INFORMATION
  Report Type: Report from Study
  Country: US (occurrence: US)
  Receive Date: 20161006
  Receipt Date: 20171004
  Transmission Date: 20180320
  Serious: No
  Sender: FDA-Public Use
  Company Number: US-AMGEN-USASL2016092645

PATIENT
  Age: 74 Year
  Sex: Female

DRUGS (1)
  1. PROLIA [Suspect]
     Active Substance: DENOSUMAB
     Indication: OSTEOPOROSIS POSTMENOPAUSAL
     Dosage: 60 MG, Q6MO
     Route: 065
     Dates: start: 201509

REACTIONS (6)
  - Sleep disorder [Unknown]
  - Intentional product misuse [Unknown]
  - Skin discolouration [Unknown]
  - Erythema [Recovering/Resolving]
  - Muscle spasms [Recovering/Resolving]
  - Skin ulcer [Recovering/Resolving]
